FAERS Safety Report 19584628 (Version 2)
Quarter: 2021Q3

REPORT INFORMATION
  Report Type: Spontaneous
  Country: RU (occurrence: RU)
  Receive Date: 20210720
  Receipt Date: 20210721
  Transmission Date: 20211014
  Serious: Yes (Other)
  Sender: FDA-Public Use
  Company Number: RU-INCYTE CORPORATION-2021IN006340

PATIENT

DRUGS (2)
  1. JAKAVI [Suspect]
     Active Substance: RUXOLITINIB
     Indication: PRODUCT USED FOR UNKNOWN INDICATION
     Dosage: 15 MG, BID (2 TIMES A DAY)
     Route: 065
     Dates: start: 20190907
  2. JAKAVI [Suspect]
     Active Substance: RUXOLITINIB
     Dosage: 15 MG, QD (ONCE DAILY)
     Route: 065

REACTIONS (12)
  - Red blood cell sedimentation rate increased [Unknown]
  - Myelocyte percentage increased [Unknown]
  - Lymphocyte percentage decreased [Unknown]
  - Bone pain [Unknown]
  - Anaemia [Unknown]
  - Red blood cell count decreased [Unknown]
  - Body temperature increased [Unknown]
  - Splenomegaly [Recovering/Resolving]
  - White blood cell count increased [Unknown]
  - Inappropriate schedule of product administration [Unknown]
  - Haematotoxicity [Unknown]
  - Platelet count decreased [Unknown]

NARRATIVE: CASE EVENT DATE: 202007
